FAERS Safety Report 17553397 (Version 1)
Quarter: 2020Q1

REPORT INFORMATION
  Report Type: Spontaneous
  Country: US (occurrence: US)
  Receive Date: 20200310
  Receipt Date: 20200310
  Transmission Date: 20200409
  Serious: No
  Sender: FDA-Public Use
  Company Number: None

PATIENT
  Age: 45 Year
  Sex: Female

DRUGS (1)
  1. GLEEVEC [Suspect]
     Active Substance: IMATINIB MESYLATE
     Route: 048
     Dates: start: 202001, end: 202003

REACTIONS (6)
  - Vomiting [None]
  - Contusion [None]
  - Nausea [None]
  - Diarrhoea [None]
  - Hepatotoxicity [None]
  - Constipation [None]

NARRATIVE: CASE EVENT DATE: 20200310
